FAERS Safety Report 7889286-9 (Version None)
Quarter: 2011Q4

REPORT INFORMATION
  Report Type: 
  Country: None (occurrence: None)
  Receive Date: 20111101
  Receipt Date: 20111017
  Transmission Date: 20120403
  Serious: Yes (Life-Threatening, Hospitalization, Other)
  Sender: FDA-Public Use
  Company Number: 2011MA015275

PATIENT
  Age: 14 Year
  Sex: Female

DRUGS (2)
  1. PHENOBARBITAL TAB [Suspect]
     Indication: EPILEPSY
  2. PHENYTOIN [Suspect]
     Indication: EPILEPSY

REACTIONS (1)
  - TOXIC EPIDERMAL NECROLYSIS [None]
